FAERS Safety Report 12660516 (Version 3)
Quarter: 2016Q3

REPORT INFORMATION
  Report Type: Spontaneous
  Country: JP (occurrence: JP)
  Receive Date: 20160817
  Receipt Date: 20160916
  Transmission Date: 20161109
  Serious: Yes (Death, Other)
  Sender: FDA-Public Use
  Company Number: JP-ASTRAZENECA-2016SE87881

PATIENT
  Age: 87 Year
  Sex: Female

DRUGS (7)
  1. RISPERIDONE. [Concomitant]
     Active Substance: RISPERIDONE
     Dosage: 1.0MG UNKNOWN
     Route: 048
     Dates: end: 201607
  2. REMINYL [Concomitant]
     Active Substance: GALANTAMINE
     Route: 048
  3. SEROQUEL [Suspect]
     Active Substance: QUETIAPINE FUMARATE
     Indication: INSOMNIA
     Route: 048
     Dates: end: 20160612
  4. FLUNITRAZEPAM [Concomitant]
     Active Substance: FLUNITRAZEPAM
     Route: 048
     Dates: start: 20160727
  5. TRIAZOLAM. [Concomitant]
     Active Substance: TRIAZOLAM
     Route: 048
  6. SEROQUEL [Suspect]
     Active Substance: QUETIAPINE FUMARATE
     Indication: INSOMNIA
     Dosage: GENERIC, 25 MG AT BEDTIME
     Route: 048
     Dates: start: 20160613, end: 201607
  7. ISOSORBIDE. [Concomitant]
     Active Substance: ISOSORBIDE

REACTIONS (3)
  - Product substitution issue [Unknown]
  - Death [Fatal]
  - Withdrawal syndrome [Not Recovered/Not Resolved]

NARRATIVE: CASE EVENT DATE: 2016
